FAERS Safety Report 7161679-7 (Version None)
Quarter: 2010Q4

REPORT INFORMATION
  Report Type: 
  Country: None (occurrence: None)
  Receive Date: 20101215
  Receipt Date: 20101206
  Transmission Date: 20110411
  Serious: Yes (Life-Threatening)
  Sender: FDA-Public Use
  Company Number: FR-PFIZER INC-2010164472

PATIENT
  Age: 60 Year
  Sex: Male

DRUGS (3)
  1. ZOLOFT [Suspect]
     Dosage: 200 MG, SINGLE
     Route: 048
     Dates: start: 20091008, end: 20091008
  2. LAROXYL [Suspect]
     Dosage: 50 MG, SINGLE
     Route: 048
     Dates: start: 20091008, end: 20091008
  3. RIVOTRIL [Suspect]
     Dosage: UNK GTT, SINGLE
     Route: 048
     Dates: start: 20091008, end: 20091008

REACTIONS (4)
  - LOSS OF CONSCIOUSNESS [None]
  - MALAISE [None]
  - OVERDOSE [None]
  - SYNCOPE [None]
